FAERS Safety Report 12911628 (Version 1)
Quarter: 2016Q4

REPORT INFORMATION
  Report Type: Report from Study
  Country: US (occurrence: US)
  Receive Date: 20161104
  Receipt Date: 20161104
  Transmission Date: 20170207
  Serious: No
  Sender: FDA-Public Use
  Company Number: US-AMGEN-USASP2016143448

PATIENT
  Age: 55 Year
  Sex: Female

DRUGS (2)
  1. XARELTO [Concomitant]
     Active Substance: RIVAROXABAN
     Dosage: UNK
  2. ENBREL [Suspect]
     Active Substance: ETANERCEPT
     Indication: PSORIASIS
     Dosage: 50 MG, 2 TIMES/WK
     Route: 065
     Dates: start: 20161011

REACTIONS (6)
  - Peripheral arthritis [Unknown]
  - Injection site pruritus [Recovered/Resolved]
  - Injection site bruising [Unknown]
  - Asthma [Unknown]
  - Wrong technique in product usage process [Unknown]
  - Injection site haemorrhage [Unknown]

NARRATIVE: CASE EVENT DATE: 2016
